FAERS Safety Report 25147017 (Version 2)
Quarter: 2025Q2

REPORT INFORMATION
  Report Type: Spontaneous
  Country: BR (occurrence: BR)
  Receive Date: 20250401
  Receipt Date: 20250416
  Transmission Date: 20250716
  Serious: Yes (Hospitalization)
  Sender: TEVA
  Company Number: BR-TEVA-VS-3315663

PATIENT
  Age: 72 Year
  Sex: Female

DRUGS (3)
  1. METHOTREXATE [Suspect]
     Active Substance: METHOTREXATE
     Indication: Rheumatoid arthritis
     Dosage: RECEIVED LOW DOSES UP TO 25MG
     Route: 065
  2. LOSARTAN [Concomitant]
     Active Substance: LOSARTAN
     Indication: Rheumatoid arthritis
     Route: 065
  3. METFORMIN [Concomitant]
     Active Substance: METFORMIN HYDROCHLORIDE
     Indication: Rheumatoid arthritis
     Route: 065

REACTIONS (4)
  - Thrombocytopenia [Recovering/Resolving]
  - Toxicity to various agents [Recovering/Resolving]
  - Mouth ulceration [Recovering/Resolving]
  - Mucosal inflammation [Recovering/Resolving]
